FAERS Safety Report 24560972 (Version 1)
Quarter: 2024Q4

REPORT INFORMATION
  Report Type: Spontaneous
  Country: FR (occurrence: FR)
  Receive Date: 20241029
  Receipt Date: 20241029
  Transmission Date: 20250115
  Serious: Yes (Hospitalization, Other)
  Sender: GLAXOSMITHKLINE
  Company Number: None

PATIENT

DRUGS (2)
  1. LAMICTAL [Suspect]
     Active Substance: LAMOTRIGINE
     Indication: Neuralgia
     Dosage: 2 DF, QD (1 TABLET MORNING AND EVENING)
     Route: 048
     Dates: start: 20230712, end: 20230728
  2. PRAZEPAM [Suspect]
     Active Substance: PRAZEPAM
     Indication: Neuralgia
     Dosage: UNK
     Route: 048
     Dates: start: 20230712, end: 20230728

REACTIONS (1)
  - Drug reaction with eosinophilia and systemic symptoms [Recovering/Resolving]

NARRATIVE: CASE EVENT DATE: 20230728
